FAERS Safety Report 9821007 (Version 1)
Quarter: 2014Q1

REPORT INFORMATION
  Report Type: Spontaneous
  Country: US (occurrence: None)
  Receive Date: 20140115
  Receipt Date: 20140115
  Transmission Date: 20141002
  Serious: No
  Sender: FDA-Public Use
  Company Number: None

PATIENT
  Age: 90 Year
  Sex: Female

DRUGS (8)
  1. NEUPRO PATCH 3MG UCB [Suspect]
     Indication: PARKINSON^S DISEASE
     Dosage: 1 DOSE QD TOPICAL.20/12/13 TO 1/12/14
     Route: 061
  2. NEUPRO PATCH 3MG UCB [Suspect]
     Indication: PARKINSON^S DISEASE
     Dosage: 1 DOSE QD TOPICAL
     Route: 061
     Dates: start: 20131220, end: 20140112
  3. PERCOCET [Concomitant]
  4. LOPRESSOR [Concomitant]
  5. NORVASC [Concomitant]
  6. ASA [Concomitant]
  7. VICODIN VIT D-3 [Concomitant]
  8. VIT B12 [Concomitant]

REACTIONS (4)
  - Application site irritation [None]
  - Application site erythema [None]
  - Application site scab [None]
  - Application site vesicles [None]
